FAERS Safety Report 7678289-5 (Version None)
Quarter: 2011Q3

REPORT INFORMATION
  Report Type: 
  Country: None (occurrence: None)
  Receive Date: 20110811
  Receipt Date: 20110801
  Transmission Date: 20111222
  Serious: Yes (Hospitalization)
  Sender: FDA-Public Use
  Company Number: PHHY2011JP42896

PATIENT
  Age: 42 Year
  Sex: Female

DRUGS (9)
  1. TEGRETOL [Suspect]
     Dosage: UNK
     Route: 048
     Dates: start: 20110215, end: 20110217
  2. MEIACT [Concomitant]
     Dosage: UNK
     Route: 048
  3. TEGRETOL [Suspect]
     Indication: TRIGEMINAL NEURALGIA
     Dosage: UNK
     Route: 048
     Dates: start: 20110208, end: 20110210
  4. NIFLAN [Concomitant]
     Dosage: UNK
     Route: 048
  5. VALTREX [Concomitant]
     Dosage: UNK
     Route: 048
  6. TRANEXAMIC ACID [Concomitant]
     Route: 048
  7. SELBEX [Concomitant]
     Dosage: UNK
     Route: 048
  8. TEGRETOL [Suspect]
     Dosage: UNK
     Route: 048
     Dates: start: 20110224, end: 20110303
  9. MUCODYNE [Concomitant]
     Route: 048

REACTIONS (7)
  - LIP SWELLING [None]
  - RASH GENERALISED [None]
  - STOMATITIS [None]
  - DRUG ERUPTION [None]
  - AURICULAR SWELLING [None]
  - ERYTHEMA [None]
  - SKIN TEST POSITIVE [None]
